FAERS Safety Report 11634334 (Version 3)
Quarter: 2015Q4

REPORT INFORMATION
  Report Type: Spontaneous
  Country: US (occurrence: None)
  Receive Date: 20151015
  Receipt Date: 20151207
  Transmission Date: 20160304
  Serious: Yes (Hospitalization, Other)
  Sender: FDA-Public Use
  Company Number: US-MDT-ADR-2015-01966

PATIENT
  Age: 50 Year
  Sex: Male

DRUGS (2)
  1. COMPOUNDED BACLOFEN INTRATHECAL 3,300 MCG/ML [Suspect]
     Active Substance: BACLOFEN
     Dosage: 499 MCG/DAY
  2. HYDROMORPHONE INTRATHECAL - 1.0 MG/ML [Suspect]
     Active Substance: HYDROMORPHONE
     Dosage: 0.1512 MG/DAY

REACTIONS (19)
  - Joint effusion [None]
  - Decubitus ulcer [None]
  - Muscle spasms [None]
  - Infection [None]
  - Hyperreflexia [None]
  - Arthritis infective [None]
  - Hypertension [None]
  - Arthralgia [None]
  - Cold sweat [None]
  - Device kink [None]
  - Blood pressure increased [None]
  - Therapeutic response decreased [None]
  - Myalgia [None]
  - Muscle spasticity [None]
  - Joint stiffness [None]
  - Urinary tract infection [None]
  - Osteomyelitis [None]
  - Headache [None]
  - Back pain [None]
